FAERS Safety Report 7914255-X (Version None)
Quarter: 2011Q4

REPORT INFORMATION
  Report Type: 
  Country: None (occurrence: None)
  Receive Date: 20111115
  Receipt Date: 20111103
  Transmission Date: 20120403
  Serious: Yes (Death, Hospitalization, Other)
  Sender: FDA-Public Use
  Company Number: US-BAXTER-2011BH033786

PATIENT
  Sex: Male

DRUGS (8)
  1. PEGASYS [Concomitant]
     Indication: PRODUCT USED FOR UNKNOWN INDICATION
     Route: 065
  2. RIBAVIRIN [Concomitant]
     Indication: PRODUCT USED FOR UNKNOWN INDICATION
     Route: 065
  3. RECOMBINATE [Suspect]
     Indication: HAEMOPHILIA
     Route: 042
  4. LASIX [Concomitant]
     Indication: PRODUCT USED FOR UNKNOWN INDICATION
     Route: 065
  5. NADOLOL [Concomitant]
     Indication: PRODUCT USED FOR UNKNOWN INDICATION
     Route: 065
  6. ADVATE [Suspect]
     Indication: HAEMOPHILIA
     Route: 065
  7. RANITIDINE [Concomitant]
     Indication: PRODUCT USED FOR UNKNOWN INDICATION
     Route: 065
  8. ALDACTONE [Concomitant]
     Indication: PRODUCT USED FOR UNKNOWN INDICATION
     Route: 065

REACTIONS (7)
  - RESPIRATORY DISTRESS [None]
  - ANAEMIA [None]
  - SHOCK [None]
  - SEPSIS [None]
  - HEPATIC FAILURE [None]
  - GASTROINTESTINAL HAEMORRHAGE [None]
  - CHRONIC HEPATIC FAILURE [None]
